FAERS Safety Report 8037137-4 (Version None)
Quarter: 2012Q1

REPORT INFORMATION
  Report Type: 
  Country: None (occurrence: None)
  Receive Date: 20120111
  Receipt Date: 20120106
  Transmission Date: 20120608
  Serious: Yes (Other)
  Sender: FDA-Public Use
  Company Number: US-BAYER-2011-107551

PATIENT
  Age: 26 Year
  Sex: Female
  Weight: 72 kg

DRUGS (1)
  1. MIRENA [Suspect]
     Indication: CONTRACEPTION
     Dosage: DAILY DOSE 20 ?G
     Route: 015
     Dates: start: 20111102, end: 20111104

REACTIONS (4)
  - DEVICE DEPLOYMENT ISSUE [None]
  - DEVICE DISLOCATION [None]
  - ABDOMINAL PAIN [None]
  - PELVIC PAIN [None]
